FAERS Safety Report 10189660 (Version 6)
Quarter: 2015Q1

REPORT INFORMATION
  Report Type: Spontaneous
  Country: US (occurrence: US)
  Receive Date: 20140522
  Receipt Date: 20150227
  Transmission Date: 20150720
  Serious: Yes (Hospitalization, Other)
  Sender: FDA-Public Use
  Company Number: US-SA-2014SA023290

PATIENT
  Age: 65 Year
  Sex: Female
  Weight: 128.82 kg

DRUGS (36)
  1. DIOVAN [Concomitant]
     Active Substance: VALSARTAN
     Dates: end: 20110327
  2. TYLENOL [Concomitant]
     Active Substance: ACETAMINOPHEN
     Dates: end: 20110327
  3. TYLENOL [Concomitant]
     Active Substance: ACETAMINOPHEN
  4. IBUPROFEN. [Concomitant]
     Active Substance: IBUPROFEN
     Route: 048
  5. DIOVAN HCT [Concomitant]
     Active Substance: HYDROCHLOROTHIAZIDE\VALSARTAN
     Dosage: STRENGTH: 320/12.5MG
     Route: 048
     Dates: start: 20131228, end: 20140106
  6. OMEPRAZOLE. [Concomitant]
     Active Substance: OMEPRAZOLE
     Route: 048
     Dates: start: 20131228
  7. LASIX [Concomitant]
     Active Substance: FUROSEMIDE
  8. LOVENOX [Concomitant]
     Active Substance: ENOXAPARIN SODIUM
     Dates: start: 20110329
  9. DILAUDID [Concomitant]
     Active Substance: HYDROMORPHONE HYDROCHLORIDE
  10. LOVENOX [Concomitant]
     Active Substance: ENOXAPARIN SODIUM
     Dates: end: 20110327
  11. FENTANYL. [Concomitant]
     Active Substance: FENTANYL
     Indication: PAIN
  12. ASPIRIN. [Concomitant]
     Active Substance: ASPIRIN
     Dosage: DOSE: 325 (UNIT UNKNOWN)
     Route: 048
  13. AUGMENTIN [Concomitant]
     Active Substance: AMOXICILLIN\CLAVULANATE POTASSIUM
     Route: 048
  14. LEVAQUIN [Concomitant]
     Active Substance: LEVOFLOXACIN
     Indication: CELLULITIS
     Route: 048
  15. DIOVAN HCT [Concomitant]
     Active Substance: HYDROCHLOROTHIAZIDE\VALSARTAN
     Dosage: STRENGTH: 320/12.5MG
     Route: 048
     Dates: start: 20140106, end: 20140306
  16. LANTUS [Suspect]
     Active Substance: INSULIN GLARGINE
     Indication: DIABETES MELLITUS
     Dosage: DOSE:50 UNIT(S)
     Route: 058
  17. AMARYL [Concomitant]
     Active Substance: GLIMEPIRIDE
     Route: 048
  18. AMARYL [Concomitant]
     Active Substance: GLIMEPIRIDE
     Route: 048
  19. GLUCOPHAGE [Concomitant]
     Active Substance: METFORMIN HYDROCHLORIDE
     Route: 048
  20. GLUCOPHAGE [Concomitant]
     Active Substance: METFORMIN HYDROCHLORIDE
     Route: 048
     Dates: start: 20090131
  21. LOPRESSOR [Concomitant]
     Active Substance: METOPROLOL TARTRATE
  22. LASIX [Concomitant]
     Active Substance: FUROSEMIDE
  23. ZITHROMAX [Concomitant]
     Active Substance: AZITHROMYCIN DIHYDRATE
     Dosage: AS DIRECTED ON PACK
     Route: 048
  24. RESTORIL [Concomitant]
     Active Substance: TEMAZEPAM
     Route: 048
  25. NORVASC [Concomitant]
     Active Substance: AMLODIPINE BESYLATE
  26. DIOVAN HCT [Concomitant]
     Active Substance: HYDROCHLOROTHIAZIDE\VALSARTAN
     Dosage: STRENGTH: 320/12.5MG
     Route: 048
     Dates: start: 20140306
  27. LOTREL [Concomitant]
     Active Substance: AMLODIPINE BESYLATE\BENAZEPRIL HYDROCHLORIDE
     Dates: end: 20110327
  28. LOTREL [Concomitant]
     Active Substance: AMLODIPINE BESYLATE\BENAZEPRIL HYDROCHLORIDE
     Dosage: 10/20 MG
     Route: 048
  29. ALDACTONE [Concomitant]
     Active Substance: SPIRONOLACTONE
     Route: 048
  30. CLONIDINE. [Concomitant]
     Active Substance: CLONIDINE
     Dosage: TAKEN ONLY TWICE
  31. DIOVAN HCT [Concomitant]
     Active Substance: HYDROCHLOROTHIAZIDE\VALSARTAN
     Dosage: STRENGTH: 320/12.5MG
     Route: 048
     Dates: start: 20131203, end: 20131228
  32. LANTUS [Suspect]
     Active Substance: INSULIN GLARGINE
     Indication: DIABETES MELLITUS
     Dosage: DOSE:55 UNIT(S)
     Route: 058
  33. DIOVAN [Concomitant]
     Active Substance: VALSARTAN
     Route: 048
  34. ASPIRIN. [Concomitant]
     Active Substance: ASPIRIN
     Route: 048
  35. CELEXA [Concomitant]
     Active Substance: CITALOPRAM HYDROBROMIDE
     Route: 048
  36. ALEVE [Concomitant]
     Active Substance: NAPROXEN SODIUM
     Route: 048

REACTIONS (9)
  - Arthritis [Not Recovered/Not Resolved]
  - Asthenia [Unknown]
  - Arthralgia [Not Recovered/Not Resolved]
  - Loss of consciousness [Unknown]
  - Drug administration error [Unknown]
  - Hyperhidrosis [Unknown]
  - Dyspnoea [Unknown]
  - Hypoglycaemia [Unknown]
  - Tendonitis [Recovering/Resolving]

NARRATIVE: CASE EVENT DATE: 20121219
